FAERS Safety Report 6241685-7 (Version None)
Quarter: 2009Q2

REPORT INFORMATION
  Report Type: 
  Country: None (occurrence: None)
  Receive Date: 20090623
  Receipt Date: 20090610
  Transmission Date: 20091009
  Serious: Yes (Hospitalization, Other)
  Sender: FDA-Public Use
  Company Number: US-ELI_LILLY_AND_COMPANY-US200906003408

PATIENT
  Age: 78 Year
  Sex: Female

DRUGS (13)
  1. CYMBALTA [Suspect]
     Indication: DEPRESSION
     Dosage: 60 MG, UNK
     Dates: start: 20060101
  2. CYMBALTA [Suspect]
     Dosage: 60 MG, UNK
     Dates: start: 20090610
  3. CENTRUM SILVER [Concomitant]
  4. VITAMIN E [Concomitant]
  5. NEXIUM [Concomitant]
     Dosage: 40 MG, DAILY (1/D)
  6. LIPITOR [Concomitant]
     Dosage: 20 MG, DAILY (1/D)
  7. METOPROLOL SUCCINATE [Concomitant]
     Dosage: 25 MG, DAILY (1/D)
  8. MICARDIS [Concomitant]
     Dosage: 40 MG, DAILY (1/D)
  9. LASIX [Concomitant]
     Dosage: 20 MG, 2/D
  10. SYNTHROID [Concomitant]
     Dosage: 75 MG, DAILY (1/D)
  11. ZETIA [Concomitant]
     Dosage: 10 MG, DAILY (1/D)
  12. LOVAZA [Concomitant]
     Dosage: 1 MG, 2/D
  13. ASPIRIN [Concomitant]
     Dosage: 81 MG, DAILY (1/D)

REACTIONS (3)
  - BLOOD PRESSURE SYSTOLIC INCREASED [None]
  - ENCEPHALOPATHY [None]
  - TRANSIENT ISCHAEMIC ATTACK [None]
